FAERS Safety Report 7700008-4 (Version None)
Quarter: 2011Q3

REPORT INFORMATION
  Report Type: 
  Country: None (occurrence: None)
  Receive Date: 20110815
  Receipt Date: 20110812
  Transmission Date: 20111222
  Serious: Yes (Disabling)
  Sender: FDA-Public Use
  Company Number: 1022556-2011-00019

PATIENT
  Sex: Female

DRUGS (1)
  1. ICY HOT NO MESS APPLICATOR 2.5 OZ [Suspect]
     Indication: MYALGIA
     Dosage: TOPICAL
     Route: 061

REACTIONS (2)
  - APPLICATION SITE IRRITATION [None]
  - APPLICATION SITE DISCOLOURATION [None]
